FAERS Safety Report 6338521-7 (Version None)
Quarter: 2009Q3

REPORT INFORMATION
  Report Type: 
  Country: None (occurrence: None)
  Receive Date: 20090901
  Receipt Date: 20090819
  Transmission Date: 20100115
  Serious: Yes (Hospitalization)
  Sender: FDA-Public Use
  Company Number: 060002L09JPN

PATIENT
  Age: 34 Year
  Sex: Female

DRUGS (3)
  1. CLOMIPHENE CITRATE [Suspect]
     Indication: INFERTILITY
     Dosage: 100 MG, ORAL
     Route: 048
  2. MENOTROPINS [Suspect]
     Dosage: 150 IU
  3. CHORIONIC GONADOTROPIN [Suspect]
     Dosage: 5000 IU; INTRAMUSCULAR
     Route: 030

REACTIONS (8)
  - ANAEMIA [None]
  - ASCITES [None]
  - HETEROTOPIC PREGNANCY [None]
  - INTRA-ABDOMINAL HAEMORRHAGE [None]
  - MULTIPLE PREGNANCY [None]
  - OVARIAN HYPERSTIMULATION SYNDROME [None]
  - PLEURAL EFFUSION [None]
  - TUBAL RUPTURE [None]
